FAERS Safety Report 18215751 (Version 1)
Quarter: 2020Q3

REPORT INFORMATION
  Report Type: Spontaneous
  Country: US (occurrence: US)
  Receive Date: 20200901
  Receipt Date: 20200901
  Transmission Date: 20201103
  Serious: No
  Sender: FDA-Public Use
  Company Number: US-AMGEN-USASP2020139765

PATIENT
  Sex: Male

DRUGS (2)
  1. OTEZLA [Suspect]
     Active Substance: APREMILAST
     Indication: PSORIASIS
     Dosage: 30 MILLIGRAM, BID
     Route: 048
     Dates: start: 20190502
  2. OTEZLA [Suspect]
     Active Substance: APREMILAST
     Dosage: HALF TABLET WHEN DON^T WANT TO EAT BREAKFAST
     Route: 048

REACTIONS (1)
  - Off label use [Unknown]
